FAERS Safety Report 16221955 (Version 3)
Quarter: 2019Q3

REPORT INFORMATION
  Report Type: Report from Study
  Country: JP (occurrence: JP)
  Receive Date: 20190422
  Receipt Date: 20190927
  Transmission Date: 20191004
  Serious: Yes (Hospitalization, Other)
  Sender: FDA-Public Use
  Company Number: JP-BRISTOL-MYERS SQUIBB COMPANY-21498423

PATIENT
  Age: 54 Year
  Sex: Male
  Weight: 64.2 kg

DRUGS (4)
  1. NIVOLUMAB [Suspect]
     Active Substance: NIVOLUMAB
     Indication: PRODUCT USED FOR UNKNOWN INDICATION
     Dosage: 2 MILLIGRAM/KILOGRAM, Q3WK
     Route: 041
     Dates: start: 20150825, end: 20170724
  2. NIVOLUMAB [Suspect]
     Active Substance: NIVOLUMAB
     Indication: MALIGNANT MELANOMA
     Dosage: 2 MILLIGRAM/KILOGRAM
     Route: 041
     Dates: start: 20140805, end: 20170724
  3. NIVOLUMAB [Suspect]
     Active Substance: NIVOLUMAB
     Indication: PRODUCT USED FOR UNKNOWN INDICATION
     Dosage: 2 MILLIGRAM/KILOGRAM, Q3WK
     Route: 041
     Dates: start: 20150310, end: 20150804
  4. NIVOLUMAB [Suspect]
     Active Substance: NIVOLUMAB
     Indication: PRODUCT USED FOR UNKNOWN INDICATION
     Dosage: 2 MILLIGRAM/KILOGRAM, Q3WK
     Route: 041
     Dates: start: 20140916, end: 20150217

REACTIONS (4)
  - Rash [Recovered/Resolved]
  - Blood alkaline phosphatase increased [Recovered/Resolved]
  - Arthralgia [Recovering/Resolving]
  - Fistula [Recovered/Resolved]

NARRATIVE: CASE EVENT DATE: 20141001
